FAERS Safety Report 4500234-1 (Version None)
Quarter: 2004Q4

REPORT INFORMATION
  Report Type: 
  Country: None (occurrence: None)
  Receive Date: 20041108
  Receipt Date: 20041026
  Transmission Date: 20050328
  Serious: Yes (Other)
  Sender: FDA-Public Use
  Company Number: HQWYE351126FEB04

PATIENT
  Age: 43 Year
  Sex: Male

DRUGS (5)
  1. REFACTO [Suspect]
     Indication: FACTOR VIII DEFICIENCY
     Dosage: 3000 IU 3X PER 1 WK INTRAVENOUS
     Route: 042
     Dates: start: 20030613
  2. TRANEXAMIC ACID (TRANEXAMIC ACID) [Concomitant]
  3. GLUCOSAMINE (GLUCOSAMINE) [Concomitant]
  4. VITAMIN C (ASCORBIC ACID) [Concomitant]
  5. ZINC (ZINC) [Concomitant]

REACTIONS (1)
  - ANTI FACTOR VIII ANTIBODY POSITIVE [None]
